FAERS Safety Report 7474135-3 (Version None)
Quarter: 2011Q2

REPORT INFORMATION
  Report Type: 
  Country: None (occurrence: None)
  Receive Date: 20110511
  Receipt Date: 20110509
  Transmission Date: 20111010
  Serious: Yes (Other)
  Sender: FDA-Public Use
  Company Number: US-PFIZER INC-2011073337

PATIENT
  Sex: Female
  Weight: 37.6 kg

DRUGS (3)
  1. IBUPROFEN [Suspect]
     Indication: ARTHRALGIA
     Dosage: 400 MG, 3X/DAY
     Route: 048
     Dates: start: 20110302, end: 20110304
  2. IBUPROFEN [Suspect]
     Indication: TEMPOROMANDIBULAR JOINT SYNDROME
     Dosage: 380 MG DAILY
     Dates: start: 20110302, end: 20110302
  3. IBUPROFEN [Suspect]
     Dosage: UNK

REACTIONS (9)
  - SHOCK [None]
  - DYSPNOEA [None]
  - LACRIMATION INCREASED [None]
  - THROAT TIGHTNESS [None]
  - HYPOTHERMIA [None]
  - RASH [None]
  - URTICARIA [None]
  - DRUG HYPERSENSITIVITY [None]
  - RHINORRHOEA [None]
